FAERS Safety Report 8958363 (Version 4)
Quarter: 2013Q2

REPORT INFORMATION
  Report Type: Spontaneous
  Country: US (occurrence: US)
  Receive Date: 20121210
  Receipt Date: 20130401
  Transmission Date: 20140414
  Serious: Yes (Other)
  Sender: FDA-Public Use
  Company Number: US-GLAXOSMITHKLINE-A1003919A

PATIENT
  Age: 73 Year
  Sex: Male

DRUGS (8)
  1. ADVAIR [Suspect]
     Indication: DYSPNOEA
     Dosage: 1PUFF PER DAY
     Route: 055
     Dates: start: 201207
  2. B-12 [Concomitant]
  3. FLUTICASONE PROPIONATE NASAL SPRAY [Concomitant]
  4. TESTOSTERONE [Concomitant]
  5. LISINOPRIL [Concomitant]
  6. WARFARIN [Concomitant]
  7. ALLOPURINOL [Concomitant]
  8. VITAMIN D [Concomitant]

REACTIONS (7)
  - Hypoxia [Not Recovered/Not Resolved]
  - Dyspnoea [Not Recovered/Not Resolved]
  - Headache [Not Recovered/Not Resolved]
  - Fatigue [Not Recovered/Not Resolved]
  - Performance status decreased [Not Recovered/Not Resolved]
  - Drug ineffective [Not Recovered/Not Resolved]
  - Product quality issue [Unknown]
